FAERS Safety Report 5804951-2 (Version None)
Quarter: 2008Q3

REPORT INFORMATION
  Report Type: 
  Country: None (occurrence: None)
  Receive Date: 20080709
  Receipt Date: 20080627
  Transmission Date: 20090109
  Serious: Yes (Hospitalization)
  Sender: FDA-Public Use
  Company Number: PHHO2008ES04748

PATIENT
  Sex: Male

DRUGS (8)
  1. MYFORTIC [Suspect]
     Indication: RENAL TRANSPLANT
     Dosage: 1080 MG / DAY
     Route: 048
     Dates: start: 20080226, end: 20080417
  2. MYFORTIC [Suspect]
     Dosage: 1080 MG / DAY
     Route: 048
     Dates: start: 20080419
  3. MYFORTIC [Suspect]
     Dosage: 720 MG  / DAY
     Route: 048
  4. TACROLIMUS COMP-TAC+ [Suspect]
     Indication: RENAL TRANSPLANT
     Dosage: 3.5 MG/DAY
     Route: 048
     Dates: start: 20080226
  5. TACROLIMUS COMP-TAC+ [Suspect]
     Dosage: 2 MG / DAY
     Route: 048
  6. TACROLIMUS COMP-TAC+ [Suspect]
     Dosage: 3 MG/DAY
     Route: 048
  7. DACORTIN [Suspect]
     Indication: RENAL TRANSPLANT
     Dosage: 20 MG / DAY
     Route: 048
     Dates: start: 20080227
  8. PREDNISONE TAB [Concomitant]
     Dosage: 10MG DAILY
     Dates: start: 20080227

REACTIONS (13)
  - CHILLS [None]
  - CYTOMEGALOVIRUS INFECTION [None]
  - DYSURIA [None]
  - ESCHERICHIA URINARY TRACT INFECTION [None]
  - GRAFT COMPLICATION [None]
  - LEUKOPENIA [None]
  - MALNUTRITION [None]
  - NAUSEA [None]
  - POLLAKIURIA [None]
  - PYELONEPHRITIS [None]
  - PYREXIA [None]
  - URINE ODOUR ABNORMAL [None]
  - VOMITING [None]
